FAERS Safety Report 9461564 (Version 4)
Quarter: 2014Q1

REPORT INFORMATION
  Report Type: Spontaneous
  Country: US (occurrence: US)
  Receive Date: 20130816
  Receipt Date: 20140221
  Transmission Date: 20141002
  Serious: Yes (Other)
  Sender: FDA-Public Use
  Company Number: US-BRISTOL-MYERS SQUIBB COMPANY-18589523

PATIENT
  Age: 45 Year
  Sex: Female
  Weight: 86.62 kg

DRUGS (5)
  1. BYETTA PEN DISPOSABLE [Suspect]
     Indication: TYPE 2 DIABETES MELLITUS
     Dosage: 01FEB06 TO 08OCT08?15OCT08 TO 05MAR10
     Dates: start: 20060201
  2. METFORMIN [Concomitant]
  3. HYDROCHLOROTHIAZIDE [Concomitant]
  4. TRAMADOL [Concomitant]
  5. XANAX [Concomitant]

REACTIONS (2)
  - Pancreatic neuroendocrine tumour metastatic [Unknown]
  - Weight decreased [Unknown]
